FAERS Safety Report 19100378 (Version 1)
Quarter: 2021Q2

REPORT INFORMATION
  Report Type: Spontaneous
  Country: CN (occurrence: CN)
  Receive Date: 20210407
  Receipt Date: 20210407
  Transmission Date: 20210717
  Serious: Yes (Hospitalization)
  Sender: FDA-Public Use
  Company Number: CN-JNJFOC-20210359601

PATIENT
  Age: 51 Year
  Sex: Female
  Weight: 38 kg

DRUGS (1)
  1. REMICADE [Suspect]
     Active Substance: INFLIXIMAB
     Indication: RHEUMATOID ARTHRITIS
     Route: 042
     Dates: start: 20210310, end: 20210310

REACTIONS (1)
  - Escherichia sepsis [Recovering/Resolving]

NARRATIVE: CASE EVENT DATE: 20210325
